FAERS Safety Report 5157817-8 (Version None)
Quarter: 2006Q4

REPORT INFORMATION
  Report Type: 
  Country: None (occurrence: None)
  Receive Date: 20061120
  Receipt Date: 20061120
  Transmission Date: 20070319
  Serious: Yes (Death)
  Sender: FDA-Public Use
  Company Number: None

PATIENT
  Sex: Female
  Weight: 58.0604 kg

DRUGS (2)
  1. PAROXETINE HCL [Suspect]
     Indication: DEPRESSION
     Dosage: 10 MG 1 PER DAY PO
     Route: 048
     Dates: start: 20060928, end: 20061012
  2. PAROXETINE HCL [Suspect]
     Dosage: 20 MG 1 EA EVENING OCCLUSIVE DRESSING
     Dates: start: 20061012, end: 20061022

REACTIONS (3)
  - COMPLETED SUICIDE [None]
  - DRUG DOSE OMISSION [None]
  - INJURY ASPHYXIATION [None]
